FAERS Safety Report 4725539-0 (Version None)
Quarter: 2005Q3

REPORT INFORMATION
  Report Type: 
  Country: None (occurrence: None)
  Receive Date: 20050722
  Receipt Date: 20050722
  Transmission Date: 20060218
  Serious: Yes (Hospitalization, Other)
  Sender: FDA-Public Use
  Company Number: None

PATIENT
  Sex: Male
  Weight: 150 kg

DRUGS (1)
  1. INTERFERON-ALPHA [Suspect]
     Indication: RENAL CELL CARCINOMA STAGE UNSPECIFIED
     Dosage: SEE IMAGE
     Route: 058
     Dates: start: 20050625, end: 20050706

REACTIONS (12)
  - ATELECTASIS [None]
  - BACK PAIN [None]
  - BLOOD GLUCOSE DECREASED [None]
  - CHEST PAIN [None]
  - COUGH [None]
  - FIBRIN D DIMER INCREASED [None]
  - HYPERVENTILATION [None]
  - HYPOTENSION [None]
  - NAUSEA [None]
  - PLEURITIC PAIN [None]
  - PYREXIA [None]
  - VOMITING [None]
